FAERS Safety Report 6913219-2 (Version None)
Quarter: 2010Q3

REPORT INFORMATION
  Report Type: 
  Country: None (occurrence: None)
  Receive Date: 20100809
  Receipt Date: 20100802
  Transmission Date: 20110219
  Serious: Yes (Hospitalization, Other)
  Sender: FDA-Public Use
  Company Number: US-ASTRAZENECA-2007UW08822

PATIENT
  Age: 34 Year
  Sex: Male
  Weight: 124.3 kg

DRUGS (59)
  1. SEROQUEL [Suspect]
     Indication: SLEEP DISORDER
     Route: 048
     Dates: start: 20030101
  2. SEROQUEL [Suspect]
     Indication: ANXIETY
     Route: 048
     Dates: start: 20030101
  3. SEROQUEL [Suspect]
     Dosage: 200-300MG
     Route: 048
     Dates: start: 20050405, end: 20070313
  4. SEROQUEL [Suspect]
     Dosage: 200-300MG
     Route: 048
     Dates: start: 20050405, end: 20070313
  5. SEROQUEL [Suspect]
     Dosage: 100-300MG
     Route: 048
     Dates: start: 20050606
  6. SEROQUEL [Suspect]
     Dosage: 100-300MG
     Route: 048
     Dates: start: 20050606
  7. ABILIFY [Suspect]
     Route: 065
     Dates: start: 20040101
  8. ABILIFY [Suspect]
     Dates: start: 20050101
  9. GEODON [Suspect]
     Route: 065
     Dates: start: 20040101
  10. GEODON [Suspect]
     Dates: start: 20050101
  11. HALDOL [Suspect]
     Route: 065
     Dates: start: 20040101
  12. HALDOL [Suspect]
     Dates: start: 20050101
  13. EFFEXOR [Suspect]
     Route: 065
     Dates: start: 20020101
  14. ZOLOFT [Concomitant]
  15. VIOXX [Concomitant]
  16. TRAMADOL HYDROCHLORIDE [Concomitant]
  17. PEPCID [Concomitant]
  18. PERCOCET [Concomitant]
  19. ASPIRIN [Concomitant]
  20. PHENERGAN [Concomitant]
  21. SODIUM CHLORIDE [Concomitant]
  22. NICOTINE [Concomitant]
  23. DIPHENHYDRAMINE [Concomitant]
  24. AMBIEN [Concomitant]
  25. KLONOPIN [Concomitant]
  26. RISPERDAL [Concomitant]
     Indication: ANXIETY
     Dates: start: 20040301, end: 20040614
  27. ZYPREXA [Concomitant]
     Indication: ANXIETY
     Dates: start: 20031124, end: 20060714
  28. TRAZODONE [Concomitant]
  29. BUSPAR [Concomitant]
  30. ATIVAN [Concomitant]
  31. COGENTIN [Concomitant]
  32. ACETAMINOPHEN [Concomitant]
  33. LEXAPRO [Concomitant]
  34. MORPHINE SULFATE [Concomitant]
  35. ZOLPIDEM [Concomitant]
  36. METFORMIN HCL [Concomitant]
  37. ATENOLOL [Concomitant]
  38. PROTONIX [Concomitant]
  39. LOPRESSOR [Concomitant]
  40. CIPROFLOXACIN [Concomitant]
  41. LANSOPRAZOLE [Concomitant]
  42. LOPERAMIDE [Concomitant]
  43. COZAAR [Concomitant]
  44. AMOXICILLIN [Concomitant]
  45. AUGMENTIN '125' [Concomitant]
  46. DILAUDID [Concomitant]
  47. CLONIDINE [Concomitant]
  48. UNASYN [Concomitant]
  49. METOCLOPRAMIDE [Concomitant]
  50. ZOFRAN [Concomitant]
  51. VANCOMYCIN [Concomitant]
  52. FLAGYL [Concomitant]
  53. ERYTHROMYCIN [Concomitant]
  54. NEURONTIN [Concomitant]
  55. HALOPERIDOL [Concomitant]
  56. KEROLAC [Concomitant]
  57. BOTULINUM TOXIN [Concomitant]
  58. GLYBURIDE [Concomitant]
  59. TORADOL [Concomitant]

REACTIONS (30)
  - ABDOMINAL PAIN [None]
  - ABDOMINAL PAIN LOWER [None]
  - ACUTE CORONARY SYNDROME [None]
  - ANXIETY [None]
  - BRONCHITIS [None]
  - CELLULITIS [None]
  - CHEST PAIN [None]
  - CHOLECYSTITIS ACUTE [None]
  - COUGH [None]
  - DEPRESSION [None]
  - DIABETES MELLITUS [None]
  - DIARRHOEA [None]
  - DRUG ABUSE [None]
  - GASTROENTERITIS [None]
  - HAEMATOCHEZIA [None]
  - HYPERHIDROSIS [None]
  - IMPAIRED GASTRIC EMPTYING [None]
  - NAUSEA [None]
  - OROPHARYNGEAL PAIN [None]
  - OTITIS MEDIA [None]
  - RESPIRATORY TRACT CONGESTION [None]
  - RETINOPATHY [None]
  - SUICIDE ATTEMPT [None]
  - SYNCOPE [None]
  - TOOTH ABSCESS [None]
  - TOOTHACHE [None]
  - TYMPANIC MEMBRANE PERFORATION [None]
  - TYPE 2 DIABETES MELLITUS [None]
  - UPPER RESPIRATORY TRACT INFECTION [None]
  - VOMITING [None]
